FAERS Safety Report 5011047-9 (Version None)
Quarter: 2006Q2

REPORT INFORMATION
  Report Type: 
  Country: None (occurrence: None)
  Receive Date: 20060525
  Receipt Date: 20040617
  Transmission Date: 20061013
  Serious: No
  Sender: FDA-Public Use
  Company Number: US-BRISTOL-MYERS SQUIBB COMPANY-12618492

PATIENT
  Sex: Female

DRUGS (1)
  1. NADOLOL [Suspect]
     Dosage: START TAKING ABOUT 1 YEAR AGO
     Dates: start: 20030101

REACTIONS (3)
  - DIPLOPIA [None]
  - HEART RATE DECREASED [None]
  - HYPOTENSION [None]
